FAERS Safety Report 10906355 (Version 8)
Quarter: 2016Q3

REPORT INFORMATION
  Report Type: Spontaneous
  Country: FR (occurrence: FR)
  Receive Date: 20150312
  Receipt Date: 20160808
  Transmission Date: 20161109
  Serious: Yes (Hospitalization, Other)
  Sender: FDA-Public Use
  Company Number: PHHY2013FR141550

PATIENT
  Age: 36 Year
  Sex: Male
  Weight: 71 kg

DRUGS (15)
  1. TRILEPTAL [Suspect]
     Active Substance: OXCARBAZEPINE
     Dosage: 450 MG, QD (300 MG IN THE MORNING AND 150 MG IN THE EVENING)
     Route: 048
     Dates: start: 201411
  2. TRILEPTAL [Suspect]
     Active Substance: OXCARBAZEPINE
     Dosage: 150 MG, BID
     Route: 048
     Dates: start: 201506
  3. URBANYL [Concomitant]
     Active Substance: CLOBAZAM
     Indication: PRODUCT USED FOR UNKNOWN INDICATION
     Route: 065
  4. VALIUM [Concomitant]
     Active Substance: DIAZEPAM
     Indication: SUICIDE ATTEMPT
  5. KERATYL [Concomitant]
     Indication: PRODUCT USED FOR UNKNOWN INDICATION
     Route: 065
  6. TRILEPTAL [Suspect]
     Active Substance: OXCARBAZEPINE
     Dosage: 300 MG IN THE MORNING AND 450 MG IN THE EVENING
     Route: 048
     Dates: end: 201412
  7. TRILEPTAL [Suspect]
     Active Substance: OXCARBAZEPINE
     Dosage: 0.5 DF, QD (CONCENTRATION 150 MG)
     Route: 048
     Dates: end: 201512
  8. VALIUM [Concomitant]
     Active Substance: DIAZEPAM
     Indication: SUICIDAL IDEATION
     Dosage: UNK, QD
     Route: 048
  9. SEROPLEX [Concomitant]
     Active Substance: ESCITALOPRAM OXALATE
     Indication: PRODUCT USED FOR UNKNOWN INDICATION
     Dosage: UNK
     Route: 065
  10. TRILEPTAL [Suspect]
     Active Substance: OXCARBAZEPINE
     Indication: EPILEPSY
     Dosage: 300 MG, BID (IN THE MORNING AND IN THE EVENING)
     Route: 048
     Dates: start: 20130422, end: 20131105
  11. TRILEPTAL [Suspect]
     Active Substance: OXCARBAZEPINE
     Dosage: 150 MG, BID
     Route: 048
     Dates: start: 201412
  12. KEPPRA [Concomitant]
     Active Substance: LEVETIRACETAM
     Indication: EPILEPSY
     Dosage: 250 MG, BID (IN THE MORNING AND IN THE EVENING)
     Route: 048
     Dates: end: 201506
  13. CERIS [Concomitant]
     Active Substance: TROSPIUM CHLORIDE
     Indication: PRODUCT USED FOR UNKNOWN INDICATION
     Route: 065
  14. THERALENE [Concomitant]
     Active Substance: TRIMEPRAZINE
     Indication: PRODUCT USED FOR UNKNOWN INDICATION
     Route: 065
     Dates: start: 201502
  15. HEPTAMYL [Concomitant]
     Active Substance: HEPTAMINOL HYDROCHLORIDE
     Indication: PRODUCT USED FOR UNKNOWN INDICATION
     Route: 065

REACTIONS (23)
  - Seizure [Recovered/Resolved]
  - Decreased appetite [Unknown]
  - Speech disorder [Not Recovered/Not Resolved]
  - Arrhythmia [Unknown]
  - Dizziness [Not Recovered/Not Resolved]
  - Suicide attempt [Recovered/Resolved]
  - Sensation of foreign body [Not Recovered/Not Resolved]
  - Suicidal ideation [Unknown]
  - Weight increased [Not Recovered/Not Resolved]
  - Anxiety [Not Recovered/Not Resolved]
  - Toxicity to various agents [Recovered/Resolved]
  - Suicidal ideation [Recovered/Resolved]
  - Depressed mood [Not Recovered/Not Resolved]
  - Memory impairment [Not Recovered/Not Resolved]
  - Dysphonia [Not Recovered/Not Resolved]
  - Constipation [Not Recovered/Not Resolved]
  - Nervousness [Not Recovered/Not Resolved]
  - Alopecia [Not Recovered/Not Resolved]
  - Feeling abnormal [Recovering/Resolving]
  - Loss of consciousness [Unknown]
  - Negative thoughts [Not Recovered/Not Resolved]
  - Headache [Recovered/Resolved]
  - Fatigue [Not Recovered/Not Resolved]

NARRATIVE: CASE EVENT DATE: 2013
